FAERS Safety Report 8052198 (Version 2)
Quarter: 2013Q4

REPORT INFORMATION
  Report Type: Spontaneous
  Country: US (occurrence: US)
  Receive Date: 20110725
  Receipt Date: 20131219
  Transmission Date: 20140711
  Serious: Yes (Hospitalization, Other)
  Sender: FDA-Public Use
  Company Number: US-BAYER-2011-063192

PATIENT
  Age: 23 Year
  Sex: Female

DRUGS (7)
  1. YASMIN [Suspect]
     Dosage: UNK
     Dates: start: 20061024, end: 20090730
  2. OCELLA [Suspect]
     Dosage: UNK
     Dates: start: 20061024, end: 20090730
  3. YAZ [Suspect]
     Dosage: UNK
     Dates: start: 20061024, end: 20090730
  4. ALDOMET [Concomitant]
     Dosage: UNK
  5. DIAZIDE [Concomitant]
     Dosage: UNK
  6. METFORMIN [Concomitant]
     Dosage: UNK
  7. MAXZIDE [Concomitant]
     Dosage: UNK

REACTIONS (9)
  - Gallbladder injury [Unknown]
  - Cholecystitis chronic [None]
  - Pain [Unknown]
  - Emotional distress [Unknown]
  - General physical health deterioration [Unknown]
  - Anxiety [Unknown]
  - General physical health deterioration [Unknown]
  - Emotional distress [Unknown]
  - Injury [Unknown]
